FAERS Safety Report 5141193-0 (Version None)
Quarter: 2006Q4

REPORT INFORMATION
  Report Type: 
  Country: None (occurrence: None)
  Receive Date: 20061101
  Receipt Date: 20061017
  Transmission Date: 20070319
  Serious: Yes (Other)
  Sender: FDA-Public Use
  Company Number: PHBS2006BR16601

PATIENT
  Age: 33 Year
  Sex: Female
  Weight: 82 kg

DRUGS (5)
  1. FORASEQ [Suspect]
     Indication: ASTHMA
     Dosage: UNK, BID
     Dates: start: 20060524
  2. FORASEQ [Suspect]
     Dosage: UNK, QD
  3. AMOXICILLIN [Concomitant]
     Indication: RHINITIS
     Dosage: UNK, TID
     Route: 048
     Dates: start: 20060524
  4. PREDICILONE [Concomitant]
     Indication: ASTHMA
     Dosage: 3 DF/DAY
     Route: 048
     Dates: start: 20060524
  5. PREDICILONE [Concomitant]
     Dosage: 1 DF/DAY
     Route: 048

REACTIONS (4)
  - CAESAREAN SECTION [None]
  - DRUG EXPOSURE DURING PREGNANCY [None]
  - DRUG EXPOSURE VIA BREAST MILK [None]
  - NORMAL NEWBORN [None]
